FAERS Safety Report 5122584-0 (Version None)
Quarter: 2006Q4

REPORT INFORMATION
  Report Type: 
  Country: None (occurrence: None)
  Receive Date: 20061004
  Receipt Date: 20060915
  Transmission Date: 20070319
  Serious: Yes (Other)
  Sender: FDA-Public Use
  Company Number: GB200608006803

PATIENT
  Age: 6 Year
  Sex: Male

DRUGS (1)
  1. STRATTERA [Suspect]
     Indication: ATTENTION DEFICIT/HYPERACTIVITY DISORDER
     Dosage: 28 MG, DAILY (1/D), ORAL
     Route: 048
     Dates: start: 20040901

REACTIONS (1)
  - CONVULSION [None]
